FAERS Safety Report 7287988-9 (Version None)
Quarter: 2011Q1

REPORT INFORMATION
  Report Type: 
  Country: None (occurrence: None)
  Receive Date: 20110208
  Receipt Date: 20110208
  Transmission Date: 20110831
  Serious: Yes (Hospitalization)
  Sender: FDA-Public Use
  Company Number: None

PATIENT
  Sex: Male
  Weight: 72.7 kg

DRUGS (4)
  1. CARBOPLATIN AUC OF 5 BRISTOL MYERS SQUIBB [Suspect]
     Indication: SMALL CELL LUNG CANCER STAGE UNSPECIFIED
     Dosage: CARBOPLATIN  EVERY 3 WEEKS IV
     Route: 042
     Dates: start: 20110119
  2. ETOPOSIDE [Suspect]
     Dosage: ETOPOSIDE EVERY THREE WEEK IV
     Route: 042
     Dates: start: 20110119
  3. ETOPOSIDE [Suspect]
     Dosage: ETOPOSIDE EVERY THREE WEEK IV
     Route: 042
     Dates: start: 20110120
  4. ETOPOSIDE [Suspect]
     Dosage: ETOPOSIDE EVERY THREE WEEK IV
     Route: 042
     Dates: start: 20110121

REACTIONS (1)
  - THROMBOCYTOPENIA [None]
